FAERS Safety Report 6408352-8 (Version None)
Quarter: 2009Q4

REPORT INFORMATION
  Report Type: 
  Country: None (occurrence: None)
  Receive Date: 20091021
  Receipt Date: 20091016
  Transmission Date: 20100525
  Serious: Yes (Death)
  Sender: FDA-Public Use
  Company Number: PHHO2009CA12793

PATIENT
  Sex: Male
  Weight: 66.2 kg

DRUGS (2)
  1. RAD 666 RAD++CMAS [Suspect]
     Indication: NON-SMALL CELL LUNG CANCER
     Dosage: 2.5 MG/DAY
     Route: 048
     Dates: start: 20070507, end: 20091013
  2. TARCEVA [Suspect]
     Indication: NON-SMALL CELL LUNG CANCER
     Dosage: 100 MG/DAY
     Route: 048
     Dates: start: 20070507, end: 20091013

REACTIONS (4)
  - ACUTE MYOCARDIAL INFARCTION [None]
  - CORONARY ARTERY DISEASE [None]
  - PERICARDIAL EFFUSION [None]
  - SYNCOPE [None]
